FAERS Safety Report 5583180-4 (Version None)
Quarter: 2008Q1

REPORT INFORMATION
  Report Type: 
  Country: None (occurrence: None)
  Receive Date: 20080103
  Receipt Date: 20080103
  Transmission Date: 20080703
  Serious: Yes (Hospitalization)
  Sender: FDA-Public Use
  Company Number: None

PATIENT
  Age: 48 Year

DRUGS (2)
  1. OXYCODONE    10MG [Suspect]
     Indication: PAIN
     Dosage: 10MG  Q6HRS PRN  PO
     Route: 048
  2. METHADONE HCL [Suspect]
     Indication: PAIN
     Dosage: 5MG  BID  PO
     Route: 048

REACTIONS (3)
  - ASCITES [None]
  - DEHYDRATION [None]
  - ILEUS PARALYTIC [None]
